FAERS Safety Report 15454856 (Version 1)
Quarter: 2018Q4

REPORT INFORMATION
  Report Type: Spontaneous
  Country: CH (occurrence: CH)
  Receive Date: 20181002
  Receipt Date: 20181002
  Transmission Date: 20190204
  Serious: Yes (Hospitalization)
  Sender: FDA-Public Use
  Company Number: CH-TEVA-2018-CH-959810

PATIENT
  Age: 86 Year
  Sex: Female

DRUGS (11)
  1. EUTHYROX [Concomitant]
     Active Substance: LEVOTHYROXINE SODIUM
     Dosage: 1-0-0-0
     Route: 048
  2. METAMUCIL N ORANGE [Concomitant]
     Dosage: POWDER, P.O. 1 - 2 ML
     Route: 048
  3. DAFALGAN [Concomitant]
     Active Substance: ACETAMINOPHEN
     Dosage: UP TO 2 TIMES AT NIGHT
     Route: 048
  4. CALCIUM D3 SANDOZ [Concomitant]
     Active Substance: CALCIUM\CHOLECALCIFEROL
     Dosage: 500/440 0-0-1-0
     Route: 048
  5. AMIODARONE-MEPHA [Suspect]
     Active Substance: AMIODARONE
     Dosage: 100 MILLIGRAM DAILY; TABLETS, 200 MG P.O. 1/2-0-0-0
     Route: 065
  6. TRAMADOL PARACETAMOL SANDOZ [Concomitant]
     Dosage: 37.5/ 325 MG UP TO 4X PER DAY
  7. MARCOUMAR [Suspect]
     Active Substance: PHENPROCOUMON
     Route: 065
  8. EUTHYROX [Concomitant]
     Active Substance: LEVOTHYROXINE SODIUM
     Dosage: 1-0-0-0
     Route: 048
  9. VITAMIN D3 WILD [Concomitant]
     Active Substance: CHOLECALCIFEROL
     Dosage: 20 DROPS PER WEEK
     Route: 048
  10. VITALUX PLUS LUTEIN OMEGA 3 [Concomitant]
     Active Substance: MINERALS\OMEGA-3 FATTY ACIDS\VITAMINS
     Dosage: 1-0-0-0
     Route: 048
  11. CONCOR [Concomitant]
     Active Substance: BISOPROLOL FUMARATE
     Dosage: 2.5 MILLIGRAM DAILY; COATED TABLETS, 2.5 MG P.O. 1/2-0-1/2-0

REACTIONS (1)
  - Spinal epidural haematoma [Recovering/Resolving]

NARRATIVE: CASE EVENT DATE: 20180724
